FAERS Safety Report 14694477 (Version 1)
Quarter: 2018Q1

REPORT INFORMATION
  Report Type: Spontaneous
  Country: US (occurrence: US)
  Receive Date: 20180328
  Receipt Date: 20180328
  Transmission Date: 20180509
  Serious: Yes (Life-Threatening, Hospitalization)
  Sender: FDA-Public Use
  Company Number: None

PATIENT
  Age: 16 Year
  Sex: Female
  Weight: 68.85 kg

DRUGS (7)
  1. SINGULAIR [Concomitant]
     Active Substance: MONTELUKAST SODIUM
     Dates: start: 20140301
  2. TENEX [Concomitant]
     Active Substance: GUANFACINE HYDROCHLORIDE
     Dates: start: 20151012
  3. LUVOX [Suspect]
     Active Substance: FLUVOXAMINE MALEATE
     Indication: GENERALISED ANXIETY DISORDER
     Route: 048
     Dates: start: 20180327, end: 20180327
  4. VISTARIL [Concomitant]
     Active Substance: HYDROXYZINE PAMOATE
     Dates: start: 20151012
  5. DAILY ORAL BIRTH CONTROL [Concomitant]
     Dates: start: 20140301
  6. CLONIDINE. [Concomitant]
     Active Substance: CLONIDINE
     Dates: start: 20151012
  7. CONCERTA [Concomitant]
     Active Substance: METHYLPHENIDATE HYDROCHLORIDE
     Dates: start: 20151012

REACTIONS (1)
  - Anaphylactic reaction [None]

NARRATIVE: CASE EVENT DATE: 20180327
